FAERS Safety Report 23293993 (Version 1)
Quarter: 2023Q4

REPORT INFORMATION
  Report Type: Spontaneous
  Country: PL (occurrence: PL)
  Receive Date: 20231213
  Receipt Date: 20231213
  Transmission Date: 20240109
  Serious: Yes (Hospitalization)
  Sender: FDA-Public Use
  Company Number: None

PATIENT
  Age: 38 Year
  Sex: Female
  Weight: 93 kg

DRUGS (2)
  1. CLINDAMYCIN [Suspect]
     Active Substance: CLINDAMYCIN
     Indication: Gingivitis
     Dosage: 600 MILLIGRAM, Q3D
     Route: 048
     Dates: start: 20230809, end: 20230815
  2. IBUPROFEN [Concomitant]
     Active Substance: IBUPROFEN
     Indication: Gingivitis
     Dosage: UNK
     Route: 065
     Dates: start: 20230807, end: 20230809

REACTIONS (2)
  - Rash papular [Unknown]
  - Erythema multiforme [Unknown]

NARRATIVE: CASE EVENT DATE: 20230813
